FAERS Safety Report 10746975 (Version 14)
Quarter: 2016Q2

REPORT INFORMATION
  Report Type: Report from Study
  Country: FI (occurrence: FI)
  Receive Date: 20150129
  Receipt Date: 20160623
  Transmission Date: 20160815
  Serious: Yes (Hospitalization, Other)
  Sender: FDA-Public Use
  Company Number: FI-ROCHE-1525472

PATIENT
  Age: 66 Year
  Sex: Male
  Weight: 100 kg

DRUGS (64)
  1. OBINUTUZUMAB [Suspect]
     Active Substance: OBINUTUZUMAB
     Dosage: C1D15
     Route: 041
     Dates: start: 20150204, end: 20150204
  2. OBINUTUZUMAB [Suspect]
     Active Substance: OBINUTUZUMAB
     Dosage: C2D1?LAST DOSE PRIOR TO NEUTROPENIA THIRD EPISODE.
     Route: 041
     Dates: start: 20150224, end: 20150224
  3. CYCLOPHOSPHAMIDE. [Suspect]
     Active Substance: CYCLOPHOSPHAMIDE
     Dosage: C2D2
     Route: 048
     Dates: start: 20150225, end: 20150225
  4. THYROXIN [Concomitant]
     Active Substance: LEVOTHYROXINE
     Route: 065
     Dates: start: 20130711
  5. SOLU-MEDROL [Concomitant]
     Active Substance: METHYLPREDNISOLONE SODIUM SUCCINATE
     Route: 042
     Dates: start: 20150115, end: 20150115
  6. SOLU-MEDROL [Concomitant]
     Active Substance: METHYLPREDNISOLONE SODIUM SUCCINATE
     Route: 042
     Dates: start: 20150224, end: 20150224
  7. PARATABS [Concomitant]
     Route: 048
     Dates: start: 20150224, end: 20150224
  8. HISTEC [Concomitant]
     Route: 048
     Dates: start: 20150428, end: 20150428
  9. ZOFRAN [Concomitant]
     Active Substance: ONDANSETRON HYDROCHLORIDE
     Route: 048
     Dates: start: 20150224, end: 20150224
  10. EMEND [Concomitant]
     Active Substance: APREPITANT
     Dosage: 125+80+80 MG
     Route: 048
     Dates: start: 20150331, end: 20150430
  11. CYCLOPHOSPHAMIDE. [Suspect]
     Active Substance: CYCLOPHOSPHAMIDE
     Dosage: C2D3?LAST DOSE PRIOR TO NEUTROPENIA THIRD EPISODE.
     Route: 048
     Dates: start: 20150226, end: 20150226
  12. SOLU-MEDROL [Concomitant]
     Active Substance: METHYLPREDNISOLONE SODIUM SUCCINATE
     Indication: PROPHYLAXIS
     Route: 042
     Dates: start: 20150114, end: 20150114
  13. SOLU-MEDROL [Concomitant]
     Active Substance: METHYLPREDNISOLONE SODIUM SUCCINATE
     Dosage: TREATMENT FOR ADVERSE EVENT 1.
     Route: 042
     Dates: start: 20150114, end: 20150114
  14. PARATABS [Concomitant]
     Route: 048
     Dates: start: 20150128, end: 20150128
  15. PARATABS [Concomitant]
     Route: 048
     Dates: start: 20150204, end: 20150204
  16. PARATABS [Concomitant]
     Route: 048
     Dates: start: 20150331, end: 20150331
  17. PARATABS [Concomitant]
     Route: 048
     Dates: start: 20150428, end: 20150428
  18. ZOFRAN [Concomitant]
     Active Substance: ONDANSETRON HYDROCHLORIDE
     Indication: PROPHYLAXIS
     Route: 048
     Dates: start: 20150114, end: 20150114
  19. OBINUTUZUMAB [Suspect]
     Active Substance: OBINUTUZUMAB
     Dosage: C1D2?LAST DOSE PRIOR TO SAE
     Route: 041
     Dates: start: 20150115, end: 20150115
  20. SOLU-MEDROL [Concomitant]
     Active Substance: METHYLPREDNISOLONE SODIUM SUCCINATE
     Route: 042
     Dates: start: 20150128, end: 20150128
  21. HISTEC [Concomitant]
     Route: 048
     Dates: start: 20150128, end: 20150128
  22. TAVEGYL [Concomitant]
     Active Substance: CLEMASTINE FUMARATE
     Dosage: FOR TREATMENT OF AE 1.
     Route: 042
     Dates: start: 20150114, end: 20150114
  23. ONDANSETRON [Concomitant]
     Active Substance: ONDANSETRON
     Indication: PROPHYLAXIS
     Dosage: FOR TREATMENT OF AE 1.
     Route: 042
     Dates: start: 20150114, end: 20150114
  24. ONDANSETRON [Concomitant]
     Active Substance: ONDANSETRON
     Route: 048
     Dates: start: 20150114, end: 20150331
  25. COTRIM D.S. [Concomitant]
     Active Substance: SULFAMETHOXAZOLE\TRIMETHOPRIM
     Indication: PROPHYLAXIS
     Dosage: STRENGTH: 100/80MG
     Route: 048
     Dates: start: 20150114
  26. COTRIM D.S. [Concomitant]
     Active Substance: SULFAMETHOXAZOLE\TRIMETHOPRIM
     Dosage: 160/800MG
     Route: 065
     Dates: start: 20140901
  27. CYCLOPHOSPHAMIDE. [Suspect]
     Active Substance: CYCLOPHOSPHAMIDE
     Dosage: C1D2
     Route: 048
     Dates: start: 20150115, end: 20150115
  28. FLUDARABINE [Suspect]
     Active Substance: FLUDARABINE PHOSPHATE
     Dosage: C2D1
     Route: 048
     Dates: start: 20150224, end: 20150224
  29. THYROXIN [Concomitant]
     Active Substance: LEVOTHYROXINE
     Indication: HYPOTHYROIDISM
     Dosage: 2 TBL TWICE A WEEK, 1 TBL 5 DAYS IN WEEK
     Route: 048
     Dates: start: 20130902
  30. SOLU-MEDROL [Concomitant]
     Active Substance: METHYLPREDNISOLONE SODIUM SUCCINATE
     Route: 042
     Dates: start: 20150204, end: 20150204
  31. SOLU-MEDROL [Concomitant]
     Active Substance: METHYLPREDNISOLONE SODIUM SUCCINATE
     Route: 042
     Dates: start: 20150526, end: 20150526
  32. FLUDARABINE [Suspect]
     Active Substance: FLUDARABINE PHOSPHATE
     Dosage: C2D3?LAST DOSE PRIOR TO NEUTROPENIA 3RD EPISODE.
     Route: 048
     Dates: start: 20150226, end: 20150226
  33. SOMAC [Concomitant]
     Active Substance: PANTOPRAZOLE SODIUM
     Indication: GASTROOESOPHAGEAL REFLUX DISEASE
     Route: 048
     Dates: start: 20110819
  34. PARATABS [Concomitant]
     Route: 048
     Dates: start: 20150623, end: 20150623
  35. HISTEC [Concomitant]
     Indication: PROPHYLAXIS
     Route: 048
     Dates: start: 20150114, end: 20150114
  36. HISTEC [Concomitant]
     Route: 048
     Dates: start: 20150224, end: 20150224
  37. PERFALGAN [Concomitant]
     Active Substance: ACETAMINOPHEN
     Dosage: FOR TREATMENT OF AE 2.
     Route: 042
     Dates: start: 20150114, end: 20150114
  38. PANADOL (FINLAND) [Concomitant]
     Indication: PROPHYLAXIS
     Route: 048
     Dates: start: 20150115, end: 20150115
  39. APURIN [Concomitant]
     Active Substance: ALLOPURINOL
     Indication: PROPHYLAXIS
     Route: 048
     Dates: start: 20141213
  40. APURIN [Concomitant]
     Active Substance: ALLOPURINOL
     Route: 048
     Dates: start: 20150113
  41. DEXAMETASON [Concomitant]
     Active Substance: DEXAMETHASONE
     Indication: PROPHYLAXIS
     Dosage: 12+9+9 MG?WITH EMEND
     Route: 048
     Dates: start: 20150331
  42. OBINUTUZUMAB [Suspect]
     Active Substance: OBINUTUZUMAB
     Indication: CHRONIC LYMPHOCYTIC LEUKAEMIA
     Dosage: C1D1?REDUCED INFUSION RATE FOR INFUSION RELATED REACTION.?FREQUENCY: ON DAY 1,2,8 AND 15 OF CYCLE 1
     Route: 041
     Dates: start: 20150114, end: 20150114
  43. OBINUTUZUMAB [Suspect]
     Active Substance: OBINUTUZUMAB
     Dosage: C1D8?DELAYED DUE TO FEBRILE NEUTROPENIA
     Route: 041
     Dates: start: 20150128, end: 20150128
  44. CYCLOPHOSPHAMIDE. [Suspect]
     Active Substance: CYCLOPHOSPHAMIDE
     Indication: CHRONIC LYMPHOCYTIC LEUKAEMIA
     Dosage: C1D1
     Route: 048
     Dates: start: 20150114, end: 20150114
  45. FLUDARABINE [Suspect]
     Active Substance: FLUDARABINE PHOSPHATE
     Dosage: C1D2
     Route: 048
     Dates: start: 20150115, end: 20150115
  46. FLUDARABINE [Suspect]
     Active Substance: FLUDARABINE PHOSPHATE
     Dosage: C1D3?LAST DOSE PRIOR TO EVENTS
     Route: 048
     Dates: start: 20150116, end: 20150116
  47. HISTEC [Concomitant]
     Route: 048
     Dates: start: 20150526, end: 20150526
  48. BURANA [Concomitant]
     Active Substance: IBUPROFEN
     Indication: PROPHYLAXIS
     Route: 048
     Dates: start: 20150107
  49. CYCLOPHOSPHAMIDE. [Suspect]
     Active Substance: CYCLOPHOSPHAMIDE
     Dosage: C1D3?LAST DOSE PRIOR TO EVENTS
     Route: 048
     Dates: start: 20150116, end: 20150116
  50. SOLU-MEDROL [Concomitant]
     Active Substance: METHYLPREDNISOLONE SODIUM SUCCINATE
     Route: 042
     Dates: start: 20150428, end: 20150428
  51. SOLU-MEDROL [Concomitant]
     Active Substance: METHYLPREDNISOLONE SODIUM SUCCINATE
     Route: 042
     Dates: start: 20150623, end: 20150623
  52. HISTEC [Concomitant]
     Route: 048
     Dates: start: 20150204, end: 20150204
  53. VALTREX [Concomitant]
     Active Substance: VALACYCLOVIR HYDROCHLORIDE
     Indication: PROPHYLAXIS
     Route: 048
     Dates: start: 20150109
  54. VALTREX [Concomitant]
     Active Substance: VALACYCLOVIR HYDROCHLORIDE
     Route: 065
     Dates: start: 20140901
  55. CYCLOPHOSPHAMIDE. [Suspect]
     Active Substance: CYCLOPHOSPHAMIDE
     Dosage: C2D1
     Route: 048
     Dates: start: 20150224, end: 20150224
  56. FLUDARABINE [Suspect]
     Active Substance: FLUDARABINE PHOSPHATE
     Indication: CHRONIC LYMPHOCYTIC LEUKAEMIA
     Dosage: C1D1
     Route: 048
     Dates: start: 20150114, end: 20150114
  57. FLUDARABINE [Suspect]
     Active Substance: FLUDARABINE PHOSPHATE
     Dosage: C2D2
     Route: 048
     Dates: start: 20150225, end: 20150225
  58. SOLU-MEDROL [Concomitant]
     Active Substance: METHYLPREDNISOLONE SODIUM SUCCINATE
     Route: 042
     Dates: start: 20150331, end: 20150331
  59. PARATABS [Concomitant]
     Indication: PROPHYLAXIS
     Route: 048
     Dates: start: 20150114, end: 20150114
  60. PARATABS [Concomitant]
     Route: 048
     Dates: start: 20150526, end: 20150526
  61. HISTEC [Concomitant]
     Route: 048
     Dates: start: 20150115, end: 20150115
  62. HISTEC [Concomitant]
     Route: 048
     Dates: start: 20150331, end: 20150331
  63. HISTEC [Concomitant]
     Route: 048
     Dates: start: 20150623, end: 20150623
  64. PETIDIN [Concomitant]
     Dosage: FOR TREATMENT OF AE 2.
     Route: 042
     Dates: start: 20150114, end: 20150114

REACTIONS (2)
  - Neutropenia [Recovered/Resolved]
  - Febrile neutropenia [Recovered/Resolved]

NARRATIVE: CASE EVENT DATE: 20150120
